FAERS Safety Report 12262592 (Version 1)
Quarter: 2016Q2

REPORT INFORMATION
  Report Type: Spontaneous
  Country: US (occurrence: None)
  Receive Date: 20160412
  Receipt Date: 20160412
  Transmission Date: 20160815
  Serious: No
  Sender: FDA-Public Use
  Company Number: None

PATIENT
  Age: 90 Year
  Sex: Female
  Weight: 54.89 kg

DRUGS (1)
  1. AMDIODARONE [Suspect]
     Active Substance: AMIODARONE

REACTIONS (21)
  - Muscular weakness [None]
  - Nausea [None]
  - Irritability [None]
  - Lethargy [None]
  - Flushing [None]
  - Feeling cold [None]
  - Mood altered [None]
  - Insomnia [None]
  - Dry eye [None]
  - Decreased appetite [None]
  - Nervousness [None]
  - Tremor [None]
  - Agitation [None]
  - Nasal dryness [None]
  - Epistaxis [None]
  - Fatigue [None]
  - Cough [None]
  - Alopecia [None]
  - Pulmonary congestion [None]
  - Depression [None]
  - Thyroid disorder [None]

NARRATIVE: CASE EVENT DATE: 20160408
